FAERS Safety Report 12545454 (Version 1)
Quarter: 2016Q3

REPORT INFORMATION
  Report Type: Spontaneous
  Country: US (occurrence: US)
  Receive Date: 20160711
  Receipt Date: 20160711
  Transmission Date: 20161109
  Serious: No
  Sender: FDA-Public Use
  Company Number: GXBR2016US001067

PATIENT
  Sex: Female
  Weight: 63.49 kg

DRUGS (1)
  1. NITRO-BID [Suspect]
     Active Substance: NITROGLYCERIN
     Indication: CARDIOVASCULAR DISORDER

REACTIONS (1)
  - Drug ineffective [Not Recovered/Not Resolved]
